FAERS Safety Report 9332039 (Version 1)
Quarter: 2013Q2

REPORT INFORMATION
  Report Type: Spontaneous
  Country: GB (occurrence: GB)
  Receive Date: 20130605
  Receipt Date: 20130605
  Transmission Date: 20140414
  Serious: Yes (Other)
  Sender: FDA-Public Use
  Company Number: GB-GILEAD-2013-0076296

PATIENT
  Age: 51 Year
  Sex: Male

DRUGS (4)
  1. TRUVADA [Suspect]
     Indication: RETROVIRAL INFECTION
     Dosage: 1 DF, QD
     Route: 048
     Dates: start: 20080313
  2. REYATAZ [Suspect]
     Indication: RETROVIRAL INFECTION
     Route: 048
     Dates: start: 20080313, end: 20130131
  3. RITONAVIR [Suspect]
     Indication: RETROVIRAL INFECTION
     Dosage: 100 MG, QD
     Route: 048
     Dates: start: 20080313
  4. TENOFOVIR [Concomitant]
     Indication: RETROVIRAL INFECTION
     Dosage: UNK

REACTIONS (2)
  - Nephrolithiasis [Recovered/Resolved]
  - Renal failure acute [Recovered/Resolved]
